FAERS Safety Report 17074071 (Version 2)
Quarter: 2019Q4

REPORT INFORMATION
  Report Type: Spontaneous
  Country: DE (occurrence: DE)
  Receive Date: 20191126
  Receipt Date: 20191210
  Transmission Date: 20200122
  Serious: Yes (Hospitalization)
  Sender: FDA-Public Use
  Company Number: DE-ABBVIE-19K-062-3013638-00

PATIENT
  Age: 28 Year
  Sex: Male

DRUGS (3)
  1. CYCLOSPORIN [Concomitant]
     Active Substance: CYCLOSPORINE
     Indication: PRODUCT USED FOR UNKNOWN INDICATION
     Dosage: 50-0-50
     Dates: end: 20191115
  2. DECORTIN H [Concomitant]
     Active Substance: PREDNISOLONE
     Indication: MACULAR OEDEMA
     Route: 048
     Dates: start: 20190524
  3. HUMIRA [Suspect]
     Active Substance: ADALIMUMAB
     Indication: UVEITIS
     Route: 058
     Dates: start: 201812, end: 201906

REACTIONS (5)
  - Multiple sclerosis [Unknown]
  - Skin disorder [Unknown]
  - Unevaluable event [Unknown]
  - Hypoaesthesia [Unknown]
  - Hypertrichosis [Unknown]

NARRATIVE: CASE EVENT DATE: 20190923
